FAERS Safety Report 7238190-8 (Version None)
Quarter: 2011Q1

REPORT INFORMATION
  Report Type: 
  Country: None (occurrence: None)
  Receive Date: 20110121
  Receipt Date: 20110118
  Transmission Date: 20110831
  Serious: No
  Sender: FDA-Public Use
  Company Number: US-PFIZER INC-2011012718

PATIENT

DRUGS (1)
  1. CLEOCIN [Suspect]
     Dosage: 300 MG, UNK
     Route: 048

REACTIONS (1)
  - DYSPHAGIA [None]
